FAERS Safety Report 4426436-0 (Version None)
Quarter: 2004Q3

REPORT INFORMATION
  Report Type: 
  Country: None (occurrence: None)
  Receive Date: 20040811
  Receipt Date: 20040727
  Transmission Date: 20050211
  Serious: Yes (Hospitalization, Other)
  Sender: FDA-Public Use
  Company Number: JP-2004-025844

PATIENT
  Age: 38 Year
  Sex: Male

DRUGS (32)
  1. BETAFERON [Suspect]
     Indication: MULTIPLE SCLEROSIS
     Dosage: 8MIU,EVERY 2D,SUBCUTANEOUS
     Route: 058
     Dates: start: 20010613, end: 20020626
  2. BETAFERON [Suspect]
     Indication: MULTIPLE SCLEROSIS
     Dosage: 8MIU,EVERY 2D,SUBCUTANEOUS
     Route: 058
     Dates: start: 20030617, end: 20030804
  3. BETAFERON [Suspect]
     Indication: MULTIPLE SCLEROSIS
     Dosage: 8MIU,EVERY 2D,SUBCUTANEOUS
     Route: 058
     Dates: start: 20020627, end: 20030916
  4. BETAFERON [Suspect]
     Indication: MULTIPLE SCLEROSIS
     Dosage: 8MIU,EVERY 2D,SUBCUTANEOUS
     Route: 058
     Dates: start: 20030812, end: 20030921
  5. BETAFERON [Suspect]
     Indication: MULTIPLE SCLEROSIS
     Dosage: 8MIU,EVERY 2D,SUBCUTANEOUS
     Route: 058
     Dates: start: 20030927, end: 20040603
  6. TEGRETOL [Concomitant]
  7. RIVOTRIL (CLONAZEPAM) [Concomitant]
  8. ALPRAZOLAM [Concomitant]
  9. KETAS (IBUDILAST) [Concomitant]
  10. ANPLAG (SARPROGRELATE HYDROCHLORIED) [Concomitant]
  11. METHYCOBAL (MECOBALAMIN) [Concomitant]
  12. ASPIRIN [Concomitant]
  13. NITRAZEPAM [Concomitant]
  14. RHYTHMY (RILMAZAFONE) [Concomitant]
  15. BRUFEN [Concomitant]
  16. KOLANTYL (DICYCLOVERINE HYDROCHLORIDE, ALUMINIUM HYDROXIDE, METHYLCELL [Concomitant]
  17. LOXONIN (LOXOPROFEN SODIUM) [Concomitant]
  18. LORCAM (LORNOXICAM) [Concomitant]
  19. TIZANIDINE HCL [Concomitant]
  20. TOLEDOMIN (MILNACIPRAN HYDROCHLORIDE) [Concomitant]
  21. IMIGRAN (SUMATRIPTAN SUCCINATE) [Concomitant]
  22. ZOMIG (RM) (ZOLMITRIPTAN) [Concomitant]
  23. PHENYTOIN [Concomitant]
  24. DIAZEPAM [Concomitant]
  25. PREDONINE [Concomitant]
  26. ZANTAC [Concomitant]
  27. MILTAX (KETOPROFEN) [Concomitant]
  28. SOSEGON (PENTAZOCINE) TABLET [Concomitant]
  29. HYALURONATE SODIUM (SURVENYL)(HYALURONATE SODIUM) INJECTION [Concomitant]
  30. LIDOCAINE [Concomitant]
  31. LAC B (LACTOBACILLUS BIFIDUS, LYOPHILIZED) [Concomitant]
  32. ......... [Concomitant]

REACTIONS (24)
  - ARTHROPATHY [None]
  - ASEPTIC NECROSIS BONE [None]
  - BACK PAIN [None]
  - DIFFERENTIAL WHITE BLOOD CELL COUNT ABNORMAL [None]
  - FALL [None]
  - HEPATIC FUNCTION ABNORMAL [None]
  - HEPATITIS [None]
  - HYPERLIPIDAEMIA [None]
  - HYPERTENSION [None]
  - INJECTION SITE ABSCESS [None]
  - INJECTION SITE ERYTHEMA [None]
  - INJECTION SITE INDURATION [None]
  - INJECTION SITE ULCER [None]
  - INJECTION SITE VESICLES [None]
  - LIVER DISORDER [None]
  - LYMPHOCYTE COUNT ABNORMAL [None]
  - LYMPHOCYTE COUNT DECREASED [None]
  - LYMPHOCYTE COUNT INCREASED [None]
  - MICROCYTIC ANAEMIA [None]
  - MUSCLE CRAMP [None]
  - NEUROGENIC BLADDER [None]
  - NEUTROPHIL COUNT INCREASED [None]
  - PLATELET COUNT INCREASED [None]
  - URINARY INCONTINENCE [None]
